FAERS Safety Report 11542134 (Version 1)
Quarter: 2015Q3

REPORT INFORMATION
  Report Type: Spontaneous
  Country: US (occurrence: US)
  Receive Date: 20150903
  Receipt Date: 20150903
  Transmission Date: 20151125
  Serious: No
  Sender: FDA-Public Use
  Company Number: US-ELI_LILLY_AND_COMPANY-US201204003055

PATIENT
  Age: 65 Year
  Sex: Female

DRUGS (3)
  1. HUMALOG [Suspect]
     Active Substance: INSULIN LISPRO
     Dosage: WITH MEALS
  2. LANTUS [Concomitant]
     Active Substance: INSULIN GLARGINE
     Dosage: 24 U, QD
     Dates: start: 201203
  3. LANTUS [Concomitant]
     Active Substance: INSULIN GLARGINE
     Dosage: 18 U, QD
     Dates: start: 201203

REACTIONS (1)
  - Hyperhidrosis [Unknown]

NARRATIVE: CASE EVENT DATE: 201203
